FAERS Safety Report 5046410-3 (Version None)
Quarter: 2006Q3

REPORT INFORMATION
  Report Type: 
  Country: None (occurrence: None)
  Receive Date: 20060706
  Receipt Date: 20060706
  Transmission Date: 20061208
  Serious: No
  Sender: FDA-Public Use
  Company Number: None

PATIENT

DRUGS (2)
  1. LORAZEPAM [Suspect]
     Indication: SEDATIVE THERAPY
     Dosage: 10 ML CONTINUOUS IV DRIP
     Route: 041
     Dates: start: 20060704, end: 20060704
  2. SODIUM CHLORIDE [Concomitant]

REACTIONS (1)
  - POOR QUALITY DRUG ADMINISTERED [None]
